FAERS Safety Report 6428322-3 (Version None)
Quarter: 2009Q4

REPORT INFORMATION
  Report Type: 
  Country: None (occurrence: None)
  Receive Date: 20091105
  Receipt Date: 20091102
  Transmission Date: 20100525
  Serious: Yes (Death, Hospitalization, Other)
  Sender: FDA-Public Use
  Company Number: US-ROXANE LABORATORIES, INC.-2009-RO-01129RO

PATIENT
  Age: 84 Year
  Sex: Female

DRUGS (4)
  1. CYCLOPHOSPHAMIDE [Suspect]
     Indication: WEGENER'S GRANULOMATOSIS
     Dosage: 75 MG
  2. CYCLOPHOSPHAMIDE [Suspect]
     Dosage: 50 MG
  3. CYCLOPHOSPHAMIDE [Suspect]
     Dosage: 50 MG
  4. PREDNISONE TAB [Suspect]
     Indication: POLYMYALGIA RHEUMATICA

REACTIONS (14)
  - ACUTE HEPATIC FAILURE [None]
  - ANTINEUTROPHIL CYTOPLASMIC ANTIBODY POSITIVE [None]
  - ARTERITIS [None]
  - ASTHENIA [None]
  - DECREASED APPETITE [None]
  - GLOMERULONEPHRITIS RAPIDLY PROGRESSIVE [None]
  - GRANULOMATOUS LIVER DISEASE [None]
  - HEPATOTOXICITY [None]
  - LIVER FUNCTION TEST ABNORMAL [None]
  - MULTI-ORGAN FAILURE [None]
  - NEUTROPENIA [None]
  - PYREXIA [None]
  - RENAL FAILURE [None]
  - WEGENER'S GRANULOMATOSIS [None]
